FAERS Safety Report 16479259 (Version 2)
Quarter: 2020Q3

REPORT INFORMATION
  Report Type: Spontaneous
  Country: US (occurrence: US)
  Receive Date: 20190626
  Receipt Date: 20200710
  Transmission Date: 20201102
  Serious: Yes (Hospitalization)
  Sender: FDA-Public Use
  Company Number: US-SAOL THERAPEUTICS-2019SAO00245

PATIENT
  Age: 59 Year
  Sex: Male

DRUGS (3)
  1. ORAL BACLOFEN [Concomitant]
     Active Substance: BACLOFEN
     Route: 048
  2. LIORESAL [Suspect]
     Active Substance: BACLOFEN
     Dosage: DOSE INCREASED 2?15%
     Route: 037
     Dates: start: 201906
  3. LIORESAL [Suspect]
     Active Substance: BACLOFEN
     Indication: MUSCLE SPASTICITY
     Dosage: 88 ?G, \DAY
     Route: 037
     Dates: end: 201906

REACTIONS (2)
  - Device kink [Recovered/Resolved]
  - Drug withdrawal syndrome [Recovered/Resolved]

NARRATIVE: CASE EVENT DATE: 20190615
